FAERS Safety Report 5005783-8 (Version None)
Quarter: 2006Q2

REPORT INFORMATION
  Report Type: 
  Country: None (occurrence: None)
  Receive Date: 20060516
  Receipt Date: 20060504
  Transmission Date: 20061013
  Serious: Yes (Disabling, Other)
  Sender: FDA-Public Use
  Company Number: US200604003363

PATIENT
  Age: 48 Year
  Sex: Female

DRUGS (5)
  1. ZYPREXA [Suspect]
     Indication: BIPOLAR DISORDER
     Dosage: 20 MG, EACH EVENING, ORAL
     Route: 048
  2. HUMULIN 70/30 [Suspect]
     Indication: DIABETES MELLITUS INSULIN-DEPENDENT
     Dosage: SEE IMAGE
     Route: 058
  3. METHADONE HCL [Concomitant]
  4. COZAAR [Concomitant]
  5. SPIRIVA [Concomitant]

REACTIONS (14)
  - ASTHMA [None]
  - BLOOD GLUCOSE DECREASED [None]
  - CHRONIC OBSTRUCTIVE PULMONARY DISEASE [None]
  - CONDITION AGGRAVATED [None]
  - CONVULSION [None]
  - DIABETES MELLITUS INSULIN-DEPENDENT [None]
  - EMPHYSEMA [None]
  - HYPERGLYCAEMIA [None]
  - INCONTINENCE [None]
  - MYALGIA [None]
  - NEUROPATHY PERIPHERAL [None]
  - RENAL DISORDER [None]
  - SLEEP APNOEA SYNDROME [None]
  - TERMINAL STATE [None]
